FAERS Safety Report 16019472 (Version 2)
Quarter: 2019Q2

REPORT INFORMATION
  Report Type: Report from Study
  Country: JP (occurrence: JP)
  Receive Date: 20190228
  Receipt Date: 20190524
  Transmission Date: 20190711
  Serious: Yes (Life-Threatening, Other)
  Sender: FDA-Public Use
  Company Number: PHHY2016JP187325

PATIENT
  Age: 68 Year
  Sex: Female

DRUGS (27)
  1. BORTEZOMIB. [Concomitant]
     Active Substance: BORTEZOMIB
     Dosage: 1.3 MG/M2, QW
     Route: 058
     Dates: start: 20160407, end: 20160420
  2. LENADEX [Concomitant]
     Active Substance: DEXAMETHASONE ACETATE
     Indication: PLASMA CELL MYELOMA
     Dosage: 25 MG, UNK
     Route: 048
     Dates: start: 20160210, end: 20160622
  3. FERROUS SODIUM CITRATE [Concomitant]
     Active Substance: SODIUM FERROUS CITRATE
     Indication: PRODUCT USED FOR UNKNOWN INDICATION
     Dosage: 50 MG, UNK
     Route: 065
  4. BROTIZOLAM [Concomitant]
     Active Substance: BROTIZOLAM
     Indication: PRODUCT USED FOR UNKNOWN INDICATION
     Dosage: 0.25 MG, UNK
     Route: 065
  5. BAYASPIRIN [Concomitant]
     Active Substance: ASPIRIN
     Indication: PRODUCT USED FOR UNKNOWN INDICATION
     Dosage: 100 MG, UNK
     Route: 065
  6. BORTEZOMIB. [Concomitant]
     Active Substance: BORTEZOMIB
     Indication: PLASMA CELL MYELOMA
     Dosage: 1.3 MG/M2, QW
     Route: 058
     Dates: start: 20160210, end: 20160302
  7. BORTEZOMIB. [Concomitant]
     Active Substance: BORTEZOMIB
     Dosage: 1.3 MG/M2, QW
     Route: 058
     Dates: start: 20160303, end: 20160323
  8. VALTREX [Concomitant]
     Active Substance: VALACYCLOVIR HYDROCHLORIDE
     Indication: PROPHYLAXIS
     Dosage: 500 MG, ONCE IN TWO DAYS (QOD)
     Route: 048
     Dates: end: 20160910
  9. FARYDAK [Suspect]
     Active Substance: PANOBINOSTAT
     Dosage: 20 MG, (3 ADMINISTRATIONS PER CYCLE)
     Route: 058
     Dates: start: 20160324, end: 20160406
  10. FARYDAK [Suspect]
     Active Substance: PANOBINOSTAT
     Dosage: 20 MG, (3 ADMINISTRATIONS PER CYCLE)
     Route: 058
     Dates: start: 20160609, end: 20160622
  11. BORTEZOMIB. [Concomitant]
     Active Substance: BORTEZOMIB
     Dosage: 1.3 MG/M2, QW
     Route: 058
     Dates: start: 20160421, end: 20160511
  12. CRESTOR [Concomitant]
     Active Substance: ROSUVASTATIN CALCIUM
     Indication: PRODUCT USED FOR UNKNOWN INDICATION
     Dosage: 2.5 MG, UNK
     Route: 065
  13. CALONAL [Concomitant]
     Active Substance: ACETAMINOPHEN
     Indication: PRODUCT USED FOR UNKNOWN INDICATION
     Dosage: 200 MG, UNK
     Route: 065
  14. FEBURIC [Concomitant]
     Active Substance: FEBUXOSTAT
     Indication: PRODUCT USED FOR UNKNOWN INDICATION
     Dosage: 20 MG, UNK
     Route: 065
  15. FARYDAK [Suspect]
     Active Substance: PANOBINOSTAT
     Indication: PLASMA CELL MYELOMA
     Dosage: 20 MG, (6 ADMINISTRATIONS PER CYCLE)
     Route: 058
     Dates: start: 20160210, end: 20160302
  16. FARYDAK [Suspect]
     Active Substance: PANOBINOSTAT
     Dosage: 20 MG, (3 ADMINISTRATIONS PER CYCLE)
     Route: 058
     Dates: start: 20160526, end: 20160608
  17. BORTEZOMIB. [Concomitant]
     Active Substance: BORTEZOMIB
     Dosage: 1.3 MG/M2, QW
     Route: 058
     Dates: start: 20160512, end: 20160525
  18. ARTIST [Concomitant]
     Active Substance: CARVEDILOL
     Indication: PRODUCT USED FOR UNKNOWN INDICATION
     Dosage: 2.5 MG, UNK
     Route: 065
  19. BORTEZOMIB. [Concomitant]
     Active Substance: BORTEZOMIB
     Dosage: 1.3 MG/M2, QW
     Route: 058
     Dates: start: 20160609, end: 20160622
  20. NEXIUM [Concomitant]
     Active Substance: ESOMEPRAZOLE MAGNESIUM
     Indication: PRODUCT USED FOR UNKNOWN INDICATION
     Dosage: 20 MG, UNK
     Route: 065
  21. FARYDAK [Suspect]
     Active Substance: PANOBINOSTAT
     Dosage: 20 MG, (3 ADMINISTRATIONS PER CYCLE)
     Route: 058
     Dates: start: 20160407, end: 20160420
  22. FARYDAK [Suspect]
     Active Substance: PANOBINOSTAT
     Dosage: 20 MG, (3 ADMINISTRATIONS PER CYCLE)
     Route: 058
     Dates: start: 20160421, end: 20160511
  23. FARYDAK [Suspect]
     Active Substance: PANOBINOSTAT
     Dosage: 20 MG, (3 ADMINISTRATIONS PER CYCLE)
     Route: 058
     Dates: start: 20160512, end: 20160525
  24. BORTEZOMIB. [Concomitant]
     Active Substance: BORTEZOMIB
     Dosage: 1.3 MG/M2, QW
     Route: 058
     Dates: start: 20160324, end: 20160406
  25. BORTEZOMIB. [Concomitant]
     Active Substance: BORTEZOMIB
     Dosage: 1.3 MG/M2, QW
     Route: 058
     Dates: start: 20160526, end: 20160608
  26. FARYDAK [Suspect]
     Active Substance: PANOBINOSTAT
     Dosage: 20 MG, (6 ADMINISTRATIONS PER CYCLE)
     Route: 058
     Dates: start: 20160303, end: 20160323
  27. LEVOFLOXACIN. [Concomitant]
     Active Substance: LEVOFLOXACIN
     Indication: PRODUCT USED FOR UNKNOWN INDICATION
     Dosage: 500 MG, UNK
     Route: 065

REACTIONS (5)
  - Fatigue [Recovering/Resolving]
  - Diarrhoea [Recovered/Resolved]
  - Bone marrow failure [Recovering/Resolving]
  - Platelet count decreased [Not Recovered/Not Resolved]
  - Diarrhoea [Recovered/Resolved]

NARRATIVE: CASE EVENT DATE: 201602
